FAERS Safety Report 16823570 (Version 1)
Quarter: 2019Q3

REPORT INFORMATION
  Report Type: Spontaneous
  Country: US (occurrence: US)
  Receive Date: 20190918
  Receipt Date: 20190918
  Transmission Date: 20191005
  Serious: No
  Sender: FDA-Public Use
  Company Number: US-PFIZER INC-2019402897

PATIENT
  Sex: Female

DRUGS (6)
  1. AMLODIPINE BESILATE [Suspect]
     Active Substance: AMLODIPINE BESYLATE
     Dosage: UNK
  2. METHYLNALTREXONE [Suspect]
     Active Substance: METHYLNALTREXONE
     Dosage: UNK
  3. CEFUROXIME. [Suspect]
     Active Substance: CEFUROXIME
     Dosage: UNK
  4. CIPROFLOXACIN. [Suspect]
     Active Substance: CIPROFLOXACIN
     Dosage: UNK
  5. RANOLAZINE. [Suspect]
     Active Substance: RANOLAZINE
     Dosage: UNK
  6. ESCITALOPRAM OXALATE. [Suspect]
     Active Substance: ESCITALOPRAM OXALATE
     Dosage: UNK

REACTIONS (1)
  - Drug hypersensitivity [Unknown]
